FAERS Safety Report 12337840 (Version 1)
Quarter: 2016Q2

REPORT INFORMATION
  Report Type: Spontaneous
  Country: IN (occurrence: US)
  Receive Date: 20160505
  Receipt Date: 20160505
  Transmission Date: 20160815
  Serious: Yes (Hospitalization, Other)
  Sender: FDA-Public Use
  Company Number: IN-CITRON PHARMA LLC-B16-0047-AE

PATIENT
  Age: 34 Year
  Sex: Female

DRUGS (1)
  1. FURADANTIN  ORAL SUSPENSION [Suspect]
     Active Substance: NITROFURANTOIN
     Indication: URINARY TRACT INFECTION
     Dosage: 100 MG, TID
     Route: 065

REACTIONS (12)
  - Metabolic acidosis [Unknown]
  - Tachypnoea [Unknown]
  - Dermatitis exfoliative [Recovered/Resolved]
  - Pyrexia [Unknown]
  - Dizziness [Unknown]
  - Condition aggravated [Recovering/Resolving]
  - Tachycardia [Unknown]
  - Drug reaction with eosinophilia and systemic symptoms [Recovered/Resolved]
  - Hypotension [Recovering/Resolving]
  - Urine output decreased [Recovering/Resolving]
  - Rash [Recovered/Resolved]
  - Cheilitis [Unknown]
